FAERS Safety Report 24312536 (Version 1)
Quarter: 2024Q3

REPORT INFORMATION
  Report Type: Spontaneous
  Country: US (occurrence: None)
  Receive Date: 20240912
  Receipt Date: 20240912
  Transmission Date: 20241017
  Serious: Yes (Hospitalization)
  Sender: Public
  Company Number: None

PATIENT
  Sex: Female

DRUGS (2)
  1. PEGASYS [Suspect]
     Active Substance: PEGINTERFERON ALFA-2A
     Dosage: FREQUENCY : WEEKLY; ?STRENGTH: 180MCG/ML
     Route: 058
     Dates: start: 202307
  2. ARCALYST SDV [Concomitant]

REACTIONS (1)
  - Pericarditis [None]
